FAERS Safety Report 10177339 (Version 2)
Quarter: 2014Q2

REPORT INFORMATION
  Report Type: Spontaneous
  Country: FR (occurrence: FR)
  Receive Date: 20140516
  Receipt Date: 20140530
  Transmission Date: 20141212
  Serious: Yes (Hospitalization)
  Sender: FDA-Public Use
  Company Number: FR-PFIZER INC-2014130414

PATIENT
  Age: 10 Year
  Sex: Male

DRUGS (2)
  1. ADVIL [Suspect]
     Indication: ARTHRALGIA
     Dosage: 4 TIMES DAILY
     Route: 048
     Dates: start: 20131113, end: 20131128
  2. APRANAX [Suspect]
     Indication: ARTHRALGIA
     Dosage: UNK
     Route: 048
     Dates: start: 20131128, end: 20131210

REACTIONS (2)
  - Duodenal ulcer [Recovered/Resolved]
  - Anaemia [Recovered/Resolved]
